FAERS Safety Report 26120870 (Version 1)
Quarter: 2025Q4

REPORT INFORMATION
  Report Type: Spontaneous
  Country: US (occurrence: None)
  Receive Date: 20251204
  Receipt Date: 20251204
  Transmission Date: 20260117
  Serious: Yes (Hospitalization)
  Sender: FDA-CTU
  Company Number: None

PATIENT
  Age: 73 Year
  Sex: Male
  Weight: 96.2 kg

DRUGS (3)
  1. FLUOROURACIL [Suspect]
     Active Substance: FLUOROURACIL
  2. IRINOTECAN [Suspect]
     Active Substance: IRINOTECAN
     Dates: end: 20251111
  3. LEUCOVORIN CALCIUM [Suspect]
     Active Substance: LEUCOVORIN CALCIUM
     Dates: end: 20251111

REACTIONS (6)
  - Abdominal pain [None]
  - Faeces discoloured [None]
  - Chromaturia [None]
  - Pruritus [None]
  - Decreased appetite [None]
  - Hepatic steatosis [None]

NARRATIVE: CASE EVENT DATE: 20251128
